FAERS Safety Report 8533233-3 (Version None)
Quarter: 2012Q3

REPORT INFORMATION
  Report Type: 
  Country: None (occurrence: None)
  Receive Date: 20120717
  Receipt Date: 20120717
  Transmission Date: 20120928
  Serious: Yes (Other)
  Sender: FDA-Public Use
  Company Number: None

PATIENT
  Sex: Male

DRUGS (2)
  1. FLOMAX [Suspect]
     Indication: POLLAKIURIA
     Dosage: 4 MG ONCE A DAY PO
     Route: 048
     Dates: start: 20100702, end: 20120716
  2. BACLOFEN [Concomitant]

REACTIONS (2)
  - RHINORRHOEA [None]
  - EYE DISCHARGE [None]
